FAERS Safety Report 10043474 (Version 1)
Quarter: 2014Q1

REPORT INFORMATION
  Report Type: Spontaneous
  Country: US (occurrence: None)
  Receive Date: 20140327
  Receipt Date: 20140327
  Transmission Date: 20141002
  Serious: Yes (Life-Threatening)
  Sender: FDA-Public Use
  Company Number: None

PATIENT
  Age: 77 Year
  Sex: Male
  Weight: 83.46 kg

DRUGS (10)
  1. REVLIMID [Suspect]
     Indication: PLASMA CELL MYELOMA
     Route: 048
  2. KYPROLIS [Concomitant]
  3. DEXAMETHASONE [Concomitant]
  4. ACYCLOVIR [Concomitant]
  5. CHLORTHALIDONE [Concomitant]
  6. ASPIRIN [Concomitant]
  7. PAROXETINE [Concomitant]
  8. OMEPRAZOLE [Concomitant]
  9. EFFEXOR XR [Concomitant]
  10. VERAPAMIL [Concomitant]

REACTIONS (1)
  - Pulmonary embolism [None]
